FAERS Safety Report 5256472-6 (Version None)
Quarter: 2007Q1

REPORT INFORMATION
  Report Type: 
  Country: None (occurrence: None)
  Receive Date: 20070306
  Receipt Date: 20070302
  Transmission Date: 20070707
  Serious: Yes (Hospitalization)
  Sender: FDA-Public Use
  Company Number: US-GLAXOSMITHKLINE-A0641597A

PATIENT
  Age: 81 Year
  Sex: Female

DRUGS (6)
  1. ADVAIR DISKUS 100/50 [Suspect]
     Indication: CHRONIC OBSTRUCTIVE PULMONARY DISEASE
     Dosage: 1PUFF TWICE PER DAY
     Route: 055
     Dates: start: 20020101
  2. NEBULIZER [Concomitant]
  3. COMBIVENT [Concomitant]
  4. SINGULAIR [Concomitant]
  5. THYROID TAB [Concomitant]
  6. BLOOD PRESSURE MEDICATION [Concomitant]

REACTIONS (5)
  - DYSPHONIA [None]
  - DYSPNOEA [None]
  - ECZEMA [None]
  - MUSCLE SPASMS [None]
  - RASH PRURITIC [None]
